FAERS Safety Report 7599012-9 (Version None)
Quarter: 2011Q3

REPORT INFORMATION
  Report Type: 
  Country: None (occurrence: None)
  Receive Date: 20110711
  Receipt Date: 20110630
  Transmission Date: 20111222
  Serious: No
  Sender: FDA-Public Use
  Company Number: US-BIOGENIDEC-2011BI024619

PATIENT
  Age: 74 Year
  Sex: Male

DRUGS (1)
  1. TYSABRI [Suspect]
     Indication: MULTIPLE SCLEROSIS
     Route: 042
     Dates: start: 20110104

REACTIONS (8)
  - DRY SKIN [None]
  - ERYTHEMA [None]
  - DIZZINESS [None]
  - MUSCULOSKELETAL DISORDER [None]
  - TREMOR [None]
  - GAIT DISTURBANCE [None]
  - MALAISE [None]
  - HEAD TITUBATION [None]
